FAERS Safety Report 24023337 (Version 2)
Quarter: 2024Q3

REPORT INFORMATION
  Report Type: Spontaneous
  Country: US (occurrence: US)
  Receive Date: 20240627
  Receipt Date: 20240722
  Transmission Date: 20241017
  Serious: No
  Sender: BAUSCH AND LOMB
  Company Number: US-BAUSCHBL-2024BNL027721

PATIENT
  Sex: Female

DRUGS (2)
  1. MIEBO [Suspect]
     Active Substance: PERFLUOROHEXYLOCTANE
     Indication: Routine health maintenance
     Dosage: FREQUENCY: TWICE A DAY
     Route: 047
  2. ARTIFICIAL TEARS (CARMELLOSE SODIUM) [Concomitant]
     Indication: Product used for unknown indication
     Dosage: LESS FREQUENTLY THAN BEFORE

REACTIONS (5)
  - Burning sensation [Unknown]
  - Product delivery mechanism issue [Unknown]
  - Product use issue [Unknown]
  - Inappropriate schedule of product administration [Unknown]
  - Drug ineffective [Unknown]
